FAERS Safety Report 7286718-4 (Version None)
Quarter: 2011Q1

REPORT INFORMATION
  Report Type: 
  Country: None (occurrence: None)
  Receive Date: 20110210
  Receipt Date: 20110203
  Transmission Date: 20110831
  Serious: Yes (Other)
  Sender: FDA-Public Use
  Company Number: JP-PFIZER INC-2011009241

PATIENT
  Age: 61 Year
  Sex: Male

DRUGS (9)
  1. ARTIST [Concomitant]
     Dosage: 10 MG, 2X/DAY
  2. SULFASALAZINE [Suspect]
     Indication: COLITIS
     Dosage: 2000 MG, 1X/DAY
     Route: 048
     Dates: start: 20101203, end: 20110127
  3. CRESTOR [Concomitant]
     Dosage: 2.5 MG, 1X/DAY
  4. VOGLIBOSE [Concomitant]
     Dosage: 0.2 MG, 3X/DAY
  5. NORVASC [Concomitant]
     Indication: HYPERTENSION
     Dosage: 5 MG DAILY
     Route: 048
  6. ASPIRIN [Concomitant]
     Dosage: 100 MG, 2X/DAY
  7. AMARYL [Concomitant]
     Dosage: 1 MG, 1X/DAY
  8. PANALDINE [Concomitant]
     Dosage: 100 MG, 2X/DAY
  9. TAKEPRON [Concomitant]
     Dosage: 15 MG, 1X/DAY

REACTIONS (1)
  - URINE OUTPUT INCREASED [None]
